FAERS Safety Report 4924357-8 (Version None)
Quarter: 2006Q1

REPORT INFORMATION
  Report Type: 
  Country: None (occurrence: None)
  Receive Date: 20060227
  Receipt Date: 20060123
  Transmission Date: 20060701
  Serious: No
  Sender: FDA-Public Use
  Company Number: US-GLAXOSMITHKLINE-A0590503A

PATIENT
  Age: 33 Year
  Sex: Female

DRUGS (1)
  1. WELLBUTRIN XL [Suspect]
     Dosage: 100MG PER DAY
     Route: 048
     Dates: start: 20060103

REACTIONS (1)
  - MENORRHAGIA [None]
